FAERS Safety Report 9808207 (Version 1)
Quarter: 2014Q1

REPORT INFORMATION
  Report Type: Spontaneous
  Country: US (occurrence: US)
  Receive Date: 20140110
  Receipt Date: 20140110
  Transmission Date: 20141002
  Serious: Yes (Other)
  Sender: FDA-Public Use
  Company Number: US-MALLINCKRODT-T201305212

PATIENT
  Age: 60 Year
  Sex: Female
  Weight: 65.76 kg

DRUGS (2)
  1. MORPHINE SULFATE [Suspect]
     Indication: ACCIDENTAL EXPOSURE TO PRODUCT
     Dosage: 5 ML, SINGLE
     Route: 048
     Dates: start: 20131230, end: 20131230
  2. ALLOPURINOL [Concomitant]
     Indication: GOUT
     Dosage: 300 MG, DAILY
     Route: 048

REACTIONS (3)
  - Accidental exposure to product [Recovered/Resolved]
  - Nervousness [Not Recovered/Not Resolved]
  - Vomiting [Recovered/Resolved]
